FAERS Safety Report 12966566 (Version 1)
Quarter: 2016Q4

REPORT INFORMATION
  Report Type: Spontaneous
  Country: US (occurrence: US)
  Receive Date: 20161121
  Receipt Date: 20161121
  Transmission Date: 20170207
  Serious: Yes (Other)
  Sender: FDA-Public Use
  Company Number: None

PATIENT
  Age: 39 Year
  Sex: Female
  Weight: 116.58 kg

DRUGS (1)
  1. LAMOTRIGINE ODT 25MG [Suspect]
     Active Substance: LAMOTRIGINE
     Indication: BIPOLAR DISORDER
     Route: 060
     Dates: start: 20150212, end: 20150320

REACTIONS (1)
  - Depression [None]

NARRATIVE: CASE EVENT DATE: 20150212
